FAERS Safety Report 11620963 (Version 3)
Quarter: 2015Q4

REPORT INFORMATION
  Report Type: Report from Study
  Country: US (occurrence: US)
  Receive Date: 20151012
  Receipt Date: 20151207
  Transmission Date: 20160304
  Serious: Yes (Hospitalization)
  Sender: FDA-Public Use
  Company Number: US-GILEAD-2015-0175570

PATIENT
  Age: 82 Year
  Sex: Male
  Weight: 88 kg

DRUGS (31)
  1. IDELALISIB [Suspect]
     Active Substance: IDELALISIB
     Indication: CHRONIC LYMPHOCYTIC LEUKAEMIA
     Dosage: 150 MG, BID
     Route: 048
     Dates: start: 20150623, end: 20151003
  2. RITUXIMAB [Suspect]
     Active Substance: RITUXIMAB
     Dosage: 761 MG, Q1WK
     Route: 042
     Dates: start: 20150805, end: 20150805
  3. RITUXIMAB [Suspect]
     Active Substance: RITUXIMAB
     Dosage: 761 MG, Q1WK
     Route: 042
     Dates: start: 20150714, end: 20150714
  4. RITUXIMAB [Suspect]
     Active Substance: RITUXIMAB
     Dosage: 761 MG, Q1WK
     Route: 042
     Dates: start: 20150728, end: 20150728
  5. PROSCAR [Concomitant]
     Active Substance: FINASTERIDE
     Indication: CARDIOVASCULAR DISORDER
  6. TEMAZEPAM. [Concomitant]
     Active Substance: TEMAZEPAM
     Indication: INSOMNIA
     Dosage: 15 MG, UNK
     Route: 048
     Dates: start: 20150915
  7. TERAZOSIN HCL [Concomitant]
     Active Substance: TERAZOSIN HYDROCHLORIDE
     Indication: HYPERTENSION
     Dosage: 5 MG, UNK
     Route: 048
     Dates: start: 20090730
  8. HYZAAR [Concomitant]
     Active Substance: HYDROCHLOROTHIAZIDE\LOSARTAN POTASSIUM
     Indication: HYPERTENSION
     Route: 048
     Dates: start: 20080806
  9. SELENIUM [Concomitant]
     Active Substance: SELENIUM
     Indication: HYPERTENSION
  10. ACETAMINOPHEN. [Concomitant]
     Active Substance: ACETAMINOPHEN
     Indication: PREMEDICATION
  11. ENOXAPARIN [Concomitant]
     Active Substance: ENOXAPARIN
     Indication: EMBOLISM
     Route: 042
     Dates: start: 20150909
  12. RITUXIMAB [Suspect]
     Active Substance: RITUXIMAB
     Indication: CHRONIC LYMPHOCYTIC LEUKAEMIA
     Dosage: 761 MG, Q1WK
     Route: 042
     Dates: start: 20150623, end: 20150623
  13. RITUXIMAB [Suspect]
     Active Substance: RITUXIMAB
     Dosage: 761 MG, Q1WK
     Route: 042
     Dates: start: 20150721, end: 20150721
  14. RITUXIMAB [Suspect]
     Active Substance: RITUXIMAB
     Dosage: 761 MG, Q1WK
     Route: 042
     Dates: start: 20150814, end: 20150814
  15. SELENIUM [Concomitant]
     Active Substance: SELENIUM
     Indication: CARDIOVASCULAR DISORDER
  16. ACETAMINOPHEN. [Concomitant]
     Active Substance: ACETAMINOPHEN
     Indication: CARDIOVASCULAR DISORDER
     Route: 048
     Dates: start: 20100504
  17. GLUCOSAMINE COMPLEX                /01555401/ [Concomitant]
     Indication: ARTHRALGIA
     Route: 048
     Dates: start: 20080806
  18. RITUXIMAB [Suspect]
     Active Substance: RITUXIMAB
     Dosage: 761 MG, Q1WK
     Route: 042
     Dates: start: 20150630, end: 20150630
  19. PROSCAR [Concomitant]
     Active Substance: FINASTERIDE
     Indication: LIPOPROTEIN DEFICIENCY
     Route: 048
     Dates: start: 20080806
  20. SELENIUM [Concomitant]
     Active Substance: SELENIUM
     Indication: LIPOPROTEIN DEFICIENCY
     Dosage: 200 UG, UNK
     Route: 048
     Dates: start: 20081010
  21. VITAMIN D                          /00107901/ [Concomitant]
     Active Substance: ERGOCALCIFEROL
     Indication: NUTRITIONAL SUPPLEMENTATION
     Route: 048
     Dates: start: 20100504
  22. CEFEPIME [Concomitant]
     Active Substance: CEFEPIME HYDROCHLORIDE
     Indication: SYSTEMIC INFLAMMATORY RESPONSE SYNDROME
     Route: 042
     Dates: start: 20151003, end: 20151003
  23. PROSCAR [Concomitant]
     Active Substance: FINASTERIDE
     Indication: HYPERTENSION
  24. NADOLOL. [Concomitant]
     Active Substance: NADOLOL
     Indication: HYPERTENSION
     Route: 048
     Dates: start: 20080806
  25. MULTIVITAMIN                       /00097801/ [Concomitant]
     Active Substance: VITAMINS
     Indication: NUTRITIONAL SUPPLEMENTATION
     Route: 048
     Dates: start: 20140516
  26. ASPIRIN                            /00002701/ [Concomitant]
     Active Substance: ASPIRIN
     Route: 048
     Dates: start: 20100504
  27. RITUXIMAB [Suspect]
     Active Substance: RITUXIMAB
     Dosage: 761 MG, Q1WK
     Route: 042
     Dates: start: 20150707, end: 20150707
  28. PROMETHAZINE - CODEINE             /01129901/ [Concomitant]
     Indication: COUGH
     Route: 048
     Dates: start: 20150921
  29. VITAMIN C [Concomitant]
     Active Substance: ASCORBIC ACID
     Indication: NUTRITIONAL SUPPLEMENTATION
     Route: 048
     Dates: start: 20100504
  30. AZITHROMYCIN [Concomitant]
     Active Substance: AZITHROMYCIN ANHYDROUS
     Dosage: 250 MG, UNK
     Route: 048
     Dates: start: 20150921
  31. DOCUSATE SODIUM. [Concomitant]
     Active Substance: DOCUSATE SODIUM
     Route: 048
     Dates: start: 20140516

REACTIONS (1)
  - Pyrexia [Recovered/Resolved]

NARRATIVE: CASE EVENT DATE: 20151003
